FAERS Safety Report 8999412 (Version 3)
Quarter: 2013Q3

REPORT INFORMATION
  Report Type: Report from Study
  Country: US (occurrence: US)
  Receive Date: 20130103
  Receipt Date: 20130801
  Transmission Date: 20140515
  Serious: Yes (Hospitalization, Other)
  Sender: FDA-Public Use
  Company Number: US-ELI_LILLY_AND_COMPANY-US201212008206

PATIENT
  Age: 84 Year
  Sex: Female

DRUGS (9)
  1. TERIPARATIDE [Suspect]
     Indication: OSTEOPOROSIS
     Dosage: 20 UG, QD
  2. TERIPARATIDE [Suspect]
     Dosage: 20 UG, QD
     Dates: start: 201211
  3. PERCOCET [Concomitant]
  4. AMBIEN [Concomitant]
     Dosage: UNK, PRN
  5. DIGOXIN [Concomitant]
  6. CIPRO [Concomitant]
  7. COUMADIN [Concomitant]
     Dosage: 5 MG, UNK
  8. METOPROLOL [Concomitant]
     Dosage: UNK, BID
  9. DILAUDID [Concomitant]
     Dosage: 2 MG, PRN

REACTIONS (3)
  - Cardiac disorder [Unknown]
  - Heart rate increased [Unknown]
  - Feeling cold [Unknown]
